FAERS Safety Report 7098183-0 (Version None)
Quarter: 2010Q4

REPORT INFORMATION
  Report Type: 
  Country: None (occurrence: None)
  Receive Date: 20101112
  Receipt Date: 20101104
  Transmission Date: 20110411
  Serious: Yes (Other)
  Sender: FDA-Public Use
  Company Number: US-US-EMD SERONO, INC.-236765K09USA

PATIENT
  Sex: Male
  Weight: 95 kg

DRUGS (5)
  1. REBIF [Suspect]
     Indication: MULTIPLE SCLEROSIS
     Route: 058
     Dates: start: 20060606
  2. NEURONTIN [Concomitant]
     Indication: MULTIPLE SCLEROSIS
     Route: 065
     Dates: end: 20090201
  3. NEURONTIN [Concomitant]
     Route: 065
     Dates: start: 20090201
  4. BACLOFEN [Concomitant]
     Indication: MULTIPLE SCLEROSIS
     Route: 065
  5. BACLOFEN [Concomitant]
     Route: 065

REACTIONS (6)
  - ARTHRALGIA [None]
  - FAECAL INCONTINENCE [None]
  - FALL [None]
  - INJECTION SITE ERYTHEMA [None]
  - MENISCUS LESION [None]
  - SLEEP APNOEA SYNDROME [None]
